FAERS Safety Report 18840786 (Version 2)
Quarter: 2021Q1

REPORT INFORMATION
  Report Type: Spontaneous
  Country: BR (occurrence: BR)
  Receive Date: 20210203
  Receipt Date: 20210208
  Transmission Date: 20210419
  Serious: No
  Sender: FDA-Public Use
  Company Number: BR-SA-2021SA026275

PATIENT
  Age: 40 Year
  Sex: Female
  Weight: 55 kg

DRUGS (6)
  1. CLEXANE [Suspect]
     Active Substance: ENOXAPARIN SODIUM
     Dosage: UNK UNK, TOTAL
  2. VITAMINS NOS [Concomitant]
     Active Substance: VITAMINS
  3. UTROGESTAN [Concomitant]
     Active Substance: PROGESTERONE
     Dosage: UNK UNK, BID
  4. METICORTEN [Concomitant]
     Active Substance: PREDNISONE
     Indication: INFLAMMATORY PAIN
  5. FOLIC ACID. [Concomitant]
     Active Substance: FOLIC ACID
  6. CLEXANE [Suspect]
     Active Substance: ENOXAPARIN SODIUM
     Indication: HYPERCOAGULATION
     Dosage: 40 MG/ML, QD
     Route: 058
     Dates: start: 20210116

REACTIONS (1)
  - Exposure during pregnancy [Unknown]
